FAERS Safety Report 6241567-0 (Version None)
Quarter: 2009Q2

REPORT INFORMATION
  Report Type: 
  Country: None (occurrence: None)
  Receive Date: 20090623
  Receipt Date: 20040224
  Transmission Date: 20091009
  Serious: Yes (Hospitalization)
  Sender: FDA-Public Use
  Company Number: DE-ROCHE-343078

PATIENT
  Sex: Male
  Weight: 60 kg

DRUGS (47)
  1. MYCOPHENOLATE MOFETIL [Suspect]
     Route: 048
     Dates: start: 20030302
  2. MYCOPHENOLATE MOFETIL [Suspect]
     Route: 048
     Dates: start: 20030606, end: 20030607
  3. MYCOPHENOLATE MOFETIL [Suspect]
     Route: 048
     Dates: start: 20030610
  4. MYCOPHENOLATE MOFETIL [Suspect]
     Route: 048
     Dates: start: 20030611
  5. MYCOPHENOLATE MOFETIL [Suspect]
     Route: 048
     Dates: start: 20030614
  6. DACLIZUMAB [Suspect]
     Route: 042
     Dates: start: 20030301, end: 20030301
  7. DACLIZUMAB [Suspect]
     Route: 042
     Dates: start: 20030314, end: 20030424
  8. TACROLIMUS [Suspect]
     Route: 048
     Dates: start: 20030301
  9. TACROLIMUS [Suspect]
     Route: 048
     Dates: start: 20030302
  10. TACROLIMUS [Suspect]
     Route: 048
     Dates: start: 20030304
  11. TACROLIMUS [Suspect]
     Route: 048
     Dates: start: 20030319
  12. TACROLIMUS [Suspect]
     Route: 048
     Dates: start: 20030612
  13. TACROLIMUS [Suspect]
     Route: 048
     Dates: start: 20030711
  14. TACROLIMUS [Suspect]
     Route: 048
     Dates: start: 20040128
  15. METHYLPREDNISOLONE [Suspect]
     Route: 042
     Dates: start: 20030301, end: 20030304
  16. PREDNISONE [Suspect]
     Route: 048
     Dates: start: 20030304
  17. PREDNISONE [Suspect]
     Route: 048
     Dates: start: 20030306
  18. PREDNISONE [Suspect]
     Route: 048
     Dates: start: 20030320
  19. PREDNISONE [Suspect]
     Route: 048
     Dates: start: 20030404
  20. PREDNISONE [Suspect]
     Route: 048
     Dates: start: 20030424
  21. PREDNISONE [Suspect]
     Route: 048
     Dates: start: 20030509
  22. PREDNISONE [Suspect]
     Route: 048
     Dates: start: 20031119
  23. PIPERACILLIN [Concomitant]
     Route: 042
     Dates: start: 20030606
  24. PIPERACILLIN [Concomitant]
     Route: 042
     Dates: start: 20030607
  25. PIPERACILLIN [Concomitant]
     Route: 042
     Dates: start: 20030613, end: 20030614
  26. SULBACTAM [Concomitant]
     Dosage: 07 JUN 2003: DOSAGE INCREASED FROM 1 G TO 3 G ONCE DAILY.
     Route: 042
     Dates: start: 20030606, end: 20030914
  27. METRONIDAZOLE [Concomitant]
     Dosage: 07 JUN 2003: FREQUENCYWAS INCREASED 3 TIMES DAILY.
     Route: 042
     Dates: start: 20030606
  28. METRONIDAZOLE [Concomitant]
     Route: 042
     Dates: start: 20030610
  29. PANTOPRAZOL [Concomitant]
     Dosage: FREQUENCY INCREASED TO 2/DAY ON 08 JUN 2003.
     Route: 042
     Dates: start: 20030607, end: 20030611
  30. METRONIDAZOLE [Concomitant]
     Route: 048
     Dates: start: 20030611, end: 20030619
  31. SUCRALFAT [Concomitant]
     Dosage: FREQUENCY INCREASED TO 3/DAY FROM 2/DAY ON 08 JUN 2003.
     Route: 048
     Dates: start: 20030607, end: 20030618
  32. LOPERAMIDE [Concomitant]
     Dosage: DOSAGE INCREASED TO 4 MG OD ON 10 JUN 2003.
     Route: 048
     Dates: start: 20030606, end: 20030610
  33. AMLODIPINE [Concomitant]
     Route: 048
     Dates: start: 20030302
  34. AMLODIPINE [Concomitant]
     Route: 048
     Dates: start: 20030308
  35. AMLODIPINE [Concomitant]
     Route: 048
     Dates: start: 20030311
  36. AMLODIPINE [Concomitant]
     Route: 048
     Dates: start: 20030314
  37. AMLODIPINE [Concomitant]
     Route: 048
     Dates: start: 20030404, end: 20030606
  38. AMPHOTERICIN B [Concomitant]
     Route: 048
     Dates: start: 20030302, end: 20030424
  39. AMPICILLIN [Concomitant]
     Route: 048
     Dates: start: 20030314, end: 20030327
  40. CLARITHROMYCIN [Concomitant]
     Route: 048
     Dates: start: 20030613, end: 20030619
  41. COTRIM [Concomitant]
     Route: 048
     Dates: start: 20030303, end: 20031119
  42. DOXAZOSIN MESYLATE [Concomitant]
     Route: 048
     Dates: start: 20030303, end: 20040128
  43. METOPROLOL SUCCINATE [Concomitant]
     Route: 048
     Dates: start: 20030302
  44. METOPROLOL SUCCINATE [Concomitant]
     Route: 048
     Dates: start: 20030303
  45. METOPROLOL SUCCINATE [Concomitant]
     Route: 048
     Dates: start: 20030806
  46. NIFEDIPINE [Concomitant]
     Route: 048
     Dates: start: 20030302, end: 20030303
  47. BLOOD, PACKED RED CELLS [Concomitant]
     Dosage: RED BLOOD CELL CONCENTRATE; FORM: VIAL.
     Route: 042
     Dates: start: 20030305, end: 20030306

REACTIONS (7)
  - ABDOMINAL PAIN UPPER [None]
  - BACTERIAL INFECTION [None]
  - C-REACTIVE PROTEIN INCREASED [None]
  - LEUKOCYTOSIS [None]
  - MUSCULAR WEAKNESS [None]
  - PYREXIA [None]
  - VOMITING [None]
